FAERS Safety Report 10148118 (Version 1)
Quarter: 2014Q2

REPORT INFORMATION
  Report Type: Spontaneous
  Country: US (occurrence: US)
  Receive Date: 20140501
  Receipt Date: 20140501
  Transmission Date: 20141212
  Serious: No
  Sender: FDA-Public Use
  Company Number: US-AMGEN-USASP2014026822

PATIENT
  Age: 62 Year
  Sex: Female

DRUGS (5)
  1. ENBREL [Suspect]
     Indication: RHEUMATOID ARTHRITIS
     Dosage: 50 MG, QWK
     Route: 065
     Dates: start: 20120606
  2. ENBREL [Suspect]
  3. LEFLUNOMIDE [Suspect]
     Indication: PRODUCT USED FOR UNKNOWN INDICATION
     Dosage: 10 MG, QD FOR 4 MONTHS
     Route: 065
  4. METHOTREXATE [Concomitant]
     Dosage: 30 MG, QWK FOR 6 TO 7 YEARS
     Route: 048
  5. PREDNISONE [Concomitant]
     Dosage: 20 MG, BID FOR 17 YEARS

REACTIONS (10)
  - Rhinorrhoea [Recovered/Resolved]
  - Asthenia [Not Recovered/Not Resolved]
  - Carpal tunnel syndrome [Not Recovered/Not Resolved]
  - Osteoarthritis [Not Recovered/Not Resolved]
  - Nodule [Not Recovered/Not Resolved]
  - Cough [Recovered/Resolved]
  - Abdominal discomfort [Recovered/Resolved]
  - Flushing [Recovered/Resolved]
  - Visual impairment [Recovered/Resolved]
  - Injection site pain [Not Recovered/Not Resolved]
